FAERS Safety Report 17474319 (Version 1)
Quarter: 2020Q1

REPORT INFORMATION
  Report Type: Report from Study
  Country: JP (occurrence: JP)
  Receive Date: 20200228
  Receipt Date: 20200228
  Transmission Date: 20200409
  Serious: Yes (Other)
  Sender: FDA-Public Use
  Company Number: JP-JNJFOC-20190736768

PATIENT
  Age: 53 Year
  Sex: Male
  Weight: 62 kg

DRUGS (15)
  1. POSTERISAN [Concomitant]
     Active Substance: LIDOCAINE
     Indication: CROHN^S DISEASE
  2. STELARA [Suspect]
     Active Substance: USTEKINUMAB
     Route: 058
     Dates: start: 20180908, end: 20180908
  3. PENTASA [Concomitant]
     Active Substance: MESALAMINE
     Indication: CROHN^S DISEASE
     Route: 048
  4. ZENTACORT [Concomitant]
     Active Substance: BUDESONIDE
     Route: 048
     Dates: start: 20190126
  5. CEFCAPENE PIVOXIL HCL [Concomitant]
     Active Substance: CEFCAPENE PIVOXIL HYDROCHLORIDE
     Indication: PYREXIA
     Dosage: UNKNOWN
     Route: 048
  6. STELARA [Suspect]
     Active Substance: USTEKINUMAB
     Route: 058
     Dates: start: 20181110, end: 20181110
  7. STELARA [Suspect]
     Active Substance: USTEKINUMAB
     Route: 058
     Dates: start: 20190126
  8. ZENTACORT [Concomitant]
     Active Substance: BUDESONIDE
     Indication: CROHN^S DISEASE
     Route: 048
     Dates: start: 20180709, end: 20180902
  9. ZENTACORT [Concomitant]
     Active Substance: BUDESONIDE
     Route: 048
     Dates: start: 20181014, end: 20181130
  10. STELARA [Suspect]
     Active Substance: USTEKINUMAB
     Route: 058
     Dates: start: 20180414, end: 20180414
  11. STELARA [Suspect]
     Active Substance: USTEKINUMAB
     Indication: CROHN^S DISEASE
     Route: 042
     Dates: start: 20180217, end: 20180217
  12. STELARA [Suspect]
     Active Substance: USTEKINUMAB
     Route: 058
     Dates: start: 20180709, end: 20180709
  13. BIOFERMIN [Concomitant]
     Active Substance: DIETARY SUPPLEMENT\PROBIOTICS
     Indication: CROHN^S DISEASE
     Route: 048
  14. ZENTACORT [Concomitant]
     Active Substance: BUDESONIDE
     Route: 048
     Dates: start: 20181201, end: 20181207
  15. ZENTACORT [Concomitant]
     Active Substance: BUDESONIDE
     Route: 048
     Dates: start: 20180903, end: 20180909

REACTIONS (3)
  - Anal fissure [Recovered/Resolved]
  - Abscess [Recovered/Resolved]
  - Pyrexia [Recovered/Resolved]

NARRATIVE: CASE EVENT DATE: 20181221
